FAERS Safety Report 15405949 (Version 5)
Quarter: 2019Q3

REPORT INFORMATION
  Report Type: Spontaneous
  Country: US (occurrence: US)
  Receive Date: 20180920
  Receipt Date: 20190905
  Transmission Date: 20191004
  Serious: No
  Sender: FDA-Public Use
  Company Number: US-PFIZER INC-2018374801

PATIENT
  Age: 55 Year
  Sex: Female
  Weight: 82.1 kg

DRUGS (13)
  1. IMIPRAMINE [Concomitant]
     Active Substance: IMIPRAMINE
     Indication: MIGRAINE
     Dosage: 30 MG, 1X/DAY (30MG AT NIGHTIME)
     Route: 048
     Dates: start: 2018
  2. ESTRADIOL. [Concomitant]
     Active Substance: ESTRADIOL
     Dosage: UNK
     Dates: start: 2017
  3. XANAX [Concomitant]
     Active Substance: ALPRAZOLAM
     Indication: MIGRAINE
     Dosage: 0.5 MG, 2X/DAY(0.5 MG, TABLET, BY MOUTH, TWICE A DAY)
     Route: 048
     Dates: start: 2013
  4. ASPIRIN. [Concomitant]
     Active Substance: ASPIRIN
     Indication: MIGRAINE
     Dosage: 81 MG, 2X/DAY
     Route: 048
     Dates: start: 2018
  5. SINGULAIR [Concomitant]
     Active Substance: MONTELUKAST SODIUM
     Dosage: UNK
     Dates: start: 2017
  6. PRISTIQ EXTENDED-RELEASE [Concomitant]
     Active Substance: DESVENLAFAXINE SUCCINATE
     Indication: DEPRESSION
     Dosage: 150 MG, DAILY (ONE 100MG TABLET AND ONE 50MG TABLET FOR A TOTAL OF 150MG ONCE DAILY)
     Dates: start: 2007
  7. ALEVE [Concomitant]
     Active Substance: NAPROXEN SODIUM
     Indication: MIGRAINE
     Dosage: 225 MG, 2X/DAY
     Route: 048
     Dates: start: 2018
  8. SOMA [Concomitant]
     Active Substance: CARISOPRODOL
     Dosage: UNK
     Dates: start: 2018
  9. RELPAX [Suspect]
     Active Substance: ELETRIPTAN HYDROBROMIDE
     Indication: MIGRAINE
     Dosage: 40 MG, AS NEEDED (40MG EVERY 12 HOURS AS NEEDED)
     Route: 048
     Dates: start: 2015
  10. METHADONE [Concomitant]
     Active Substance: METHADONE HYDROCHLORIDE
     Indication: MIGRAINE
     Dosage: 20 MG, 2X/DAY(20MG, TABLET, BY MOUTH, TWICE DAILY)
     Route: 048
     Dates: start: 2013
  11. PRISTIQ EXTENDED-RELEASE [Concomitant]
     Active Substance: DESVENLAFAXINE SUCCINATE
     Dosage: 150 MG, DAILY(ONE 100MG TABLET AND ONE 50MG TABLET FOR A TOTAL OF 150MG ONCE DAILY)
  12. CLONIDINE. [Concomitant]
     Active Substance: CLONIDINE
     Indication: BLOOD PRESSURE ABNORMAL
     Dosage: 0.05 MG, 2X/DAY (HALF A TABLET IN THE MORNING AND HALF IN THE EVENING FOR A TOTAL OF 0.1 MG DAILY)
     Route: 048
     Dates: start: 2015
  13. CLONIDINE. [Concomitant]
     Active Substance: CLONIDINE
     Indication: MIGRAINE

REACTIONS (3)
  - Incorrect dose administered [Unknown]
  - Migraine [Not Recovered/Not Resolved]
  - Blood pressure increased [Unknown]

NARRATIVE: CASE EVENT DATE: 20180808
